FAERS Safety Report 7245479-5 (Version None)
Quarter: 2011Q1

REPORT INFORMATION
  Report Type: 
  Country: None (occurrence: None)
  Receive Date: 20110126
  Receipt Date: 20110118
  Transmission Date: 20110831
  Serious: Yes (Hospitalization)
  Sender: FDA-Public Use
  Company Number: US-ASTRAZENECA-2011SE03074

PATIENT
  Age: 68 Year
  Sex: Male

DRUGS (9)
  1. LISINOPRIL [Concomitant]
  2. GUAIFENISEN [Concomitant]
  3. PULMICORT [Suspect]
     Indication: ASTHMA
     Dosage: OCCASIONALLY
     Route: 055
  4. ALBUTEROL [Concomitant]
  5. SIMVASTATIN [Concomitant]
  6. JANUMET [Concomitant]
  7. CLARITIN [Concomitant]
  8. BENADRYL [Concomitant]
  9. SYMBICORT [Suspect]
     Dosage: 160/4.5, 2 PUFFS BID
     Route: 055

REACTIONS (2)
  - INFLUENZA [None]
  - ASTHMA [None]
